FAERS Safety Report 7545826-0 (Version None)
Quarter: 2011Q2

REPORT INFORMATION
  Report Type: 
  Country: None (occurrence: None)
  Receive Date: 20110613
  Receipt Date: 20110613
  Transmission Date: 20111010
  Serious: Yes (Other)
  Sender: FDA-Public Use
  Company Number: None

PATIENT
  Sex: Female
  Weight: 56.246 kg

DRUGS (1)
  1. TRIAMCINOLONE [Suspect]
     Indication: ORAL LICHEN PLANUS
     Dosage: DAB OF PASTE ON Q-TIP AS NEEDED 1-3X/DAY TOP
     Route: 061
     Dates: start: 20110602, end: 20110604

REACTIONS (3)
  - PRODUCT SUBSTITUTION ISSUE [None]
  - ORAL LICHEN PLANUS [None]
  - CONDITION AGGRAVATED [None]
